FAERS Safety Report 18819150 (Version 6)
Quarter: 2024Q2

REPORT INFORMATION
  Report Type: Report from Study
  Country: DE (occurrence: GB)
  Receive Date: 20210202
  Receipt Date: 20240413
  Transmission Date: 20240715
  Serious: Yes (Life-Threatening, Hospitalization, Disabling)
  Sender: FDA-Public Use
  Company Number: DE-JNJFOC-20210146244

PATIENT
  Age: 9 Decade
  Sex: Female

DRUGS (15)
  1. SIMPONI [Suspect]
     Active Substance: GOLIMUMAB
     Indication: Rheumatoid arthritis
     Route: 058
     Dates: start: 20170905, end: 20200402
  2. SIMPONI [Suspect]
     Active Substance: GOLIMUMAB
     Route: 058
     Dates: start: 202012, end: 202306
  3. METHOTREXATE [Concomitant]
     Active Substance: METHOTREXATE
     Dosage: 5MG/W / ALSO REPORTED 10MG
     Route: 065
  4. ENALAPRIL [Concomitant]
     Active Substance: ENALAPRIL
  5. IBUPROFEN [Concomitant]
     Active Substance: IBUPROFEN
  6. OMEPRAZOLE [Concomitant]
     Active Substance: OMEPRAZOLE
  7. ASPIRIN [Concomitant]
     Active Substance: ASPIRIN
  8. EDOXABAN [Concomitant]
     Active Substance: EDOXABAN
  9. FOLIC ACID [Concomitant]
     Active Substance: FOLIC ACID
  10. TORSEMIDE [Concomitant]
     Active Substance: TORSEMIDE
  11. AMLODIPINE [Concomitant]
     Active Substance: AMLODIPINE BESYLATE
  12. RAMIPRIL [Concomitant]
     Active Substance: RAMIPRIL
  13. PRAVASTATIN [Concomitant]
     Active Substance: PRAVASTATIN
  14. TAMOXIFEN [Concomitant]
     Active Substance: TAMOXIFEN
  15. FORMOTEROL [Concomitant]
     Active Substance: FORMOTEROL

REACTIONS (1)
  - Breast cancer metastatic [Not Recovered/Not Resolved]

NARRATIVE: CASE EVENT DATE: 20200115
